FAERS Safety Report 25809910 (Version 1)
Quarter: 2025Q3

REPORT INFORMATION
  Report Type: Spontaneous
  Country: US (occurrence: US)
  Receive Date: 20250917
  Receipt Date: 20250917
  Transmission Date: 20251020
  Serious: Yes (Other)
  Sender: GLAXOSMITHKLINE
  Company Number: US-GLAXOSMITHKLINE INC-US2025AMR115214

PATIENT
  Sex: Female

DRUGS (1)
  1. BENLYSTA [Suspect]
     Active Substance: BELIMUMAB
     Indication: Pericarditis lupus
     Dosage: 200 MG, WE, (1MLX4)

REACTIONS (3)
  - Pericarditis lupus [Unknown]
  - Condition aggravated [Unknown]
  - Product use in unapproved indication [Unknown]
